FAERS Safety Report 7076260 (Version 2)
Quarter: 2014Q2

REPORT INFORMATION
  Report Type: Spontaneous
  Country: US (occurrence: None)
  Receive Date: 20090803
  Receipt Date: 20140422
  Transmission Date: 20141212
  Serious: No
  Sender: FDA-Public Use
  Company Number: 2009S1006008

PATIENT
  Age: 65 Year
  Sex: Male

DRUGS (3)
  1. FLEET PHOSPHO-SODA [Suspect]
     Indication: COLONOSCOPY
     Dosage: PO
     Route: 048
     Dates: start: 200901
  2. METFORMIN (METFORMIN) [Concomitant]
  3. DIOVAN (VALSARTAN) [Concomitant]

REACTIONS (8)
  - Dialysis [None]
  - Blood pressure increased [None]
  - Heart rate increased [None]
  - Malignant hypertension [None]
  - Renal failure acute [None]
  - Metabolic acidosis [None]
  - Abdominal sepsis [None]
  - Clostridium difficile colitis [None]
